FAERS Safety Report 15759013 (Version 2)
Quarter: 2018Q4

REPORT INFORMATION
  Report Type: Report from Study
  Country: None (occurrence: US)
  Receive Date: 20181226
  Receipt Date: 20181226
  Transmission Date: 20190205
  Serious: Yes (Hospitalization)
  Sender: FDA-Public Use
  Company Number: US-ABBVIE-18K-163-2598036-00

PATIENT
  Sex: Female

DRUGS (1)
  1. HUMIRA [Suspect]
     Active Substance: ADALIMUMAB
     Indication: RHEUMATOID ARTHRITIS
     Route: 058

REACTIONS (5)
  - Aphasia [Recovering/Resolving]
  - Tremor [Recovering/Resolving]
  - Vaginal haemorrhage [Not Recovered/Not Resolved]
  - Speech disorder [Recovering/Resolving]
  - Accidental overdose [Recovering/Resolving]
